FAERS Safety Report 19441756 (Version 2)
Quarter: 2021Q3

REPORT INFORMATION
  Report Type: Spontaneous
  Country: TR (occurrence: TR)
  Receive Date: 20210621
  Receipt Date: 20210708
  Transmission Date: 20211014
  Serious: Yes (Hospitalization, Other)
  Sender: FDA-Public Use
  Company Number: TR-MACLEODS PHARMACEUTICALS US LTD-MAC2021031539

PATIENT

DRUGS (3)
  1. OLANZAPINE. [Suspect]
     Active Substance: OLANZAPINE
     Dosage: 10 MILLIGRAM, QD, DOSE DECREASED
     Route: 065
  2. OLANZAPINE. [Suspect]
     Active Substance: OLANZAPINE
     Indication: AUTISM SPECTRUM DISORDER
     Dosage: 15 MILLIGRAM, QD, DOSE INCREASED
     Route: 065
  3. OLANZAPINE. [Suspect]
     Active Substance: OLANZAPINE
     Indication: ATTENTION DEFICIT HYPERACTIVITY DISORDER
     Dosage: 10 MILLIGRAM, QD
     Route: 065

REACTIONS (5)
  - Polydipsia [Recovered/Resolved]
  - Seizure [Recovered/Resolved]
  - Blood sodium decreased [Recovered/Resolved]
  - Agitation [Recovered/Resolved]
  - Polyuria [Recovered/Resolved]
